FAERS Safety Report 6019027-1 (Version None)
Quarter: 2008Q4

REPORT INFORMATION
  Report Type: 
  Country: None (occurrence: None)
  Receive Date: 20081221
  Receipt Date: 20081221
  Transmission Date: 20090506
  Serious: Yes (Other)
  Sender: FDA-Public Use
  Company Number: None

PATIENT
  Age: 5 Year
  Sex: Male
  Weight: 21.7727 kg

DRUGS (1)
  1. PULMICORT RESPULES [Suspect]
     Indication: ASTHMA
     Dosage: 1 AMPULE ONCE PER DAY INHAL
     Route: 055
     Dates: start: 20081219, end: 20081219

REACTIONS (4)
  - CHILLS [None]
  - ERYTHEMA [None]
  - FATIGUE [None]
  - FEELING COLD [None]
